FAERS Safety Report 17391016 (Version 2)
Quarter: 2020Q2

REPORT INFORMATION
  Report Type: Report from Study
  Country: LB (occurrence: LB)
  Receive Date: 20200207
  Receipt Date: 20200504
  Transmission Date: 20200713
  Serious: Yes (Death, Other)
  Sender: FDA-Public Use
  Company Number: LB-ROCHE-2538093

PATIENT
  Age: 72 Year
  Sex: Male

DRUGS (1)
  1. ATEZOLIZUMAB. [Suspect]
     Active Substance: ATEZOLIZUMAB
     Indication: SMALL CELL LUNG CANCER
     Dosage: DATES OF LATEST DOSE OF ATEZOLIZUMAB PRIOR TO SAE: 29/AUG/2019, 25/SEP/2019, 16/OCT/2019, 12/NOV/201
     Route: 041
     Dates: start: 20190808

REACTIONS (2)
  - Mental status changes [Unknown]
  - Death [Fatal]
